FAERS Safety Report 4301990-8 (Version None)
Quarter: 2004Q1

REPORT INFORMATION
  Report Type: 
  Country: None (occurrence: None)
  Receive Date: 20040220
  Receipt Date: 20040213
  Transmission Date: 20041129
  Serious: Yes (Other)
  Sender: FDA-Public Use
  Company Number: PERI00204000444

PATIENT
  Age: 54 Year
  Sex: Male

DRUGS (1)
  1. COVERSYL (PERINDOPRIL) [Suspect]
     Indication: ILL-DEFINED DISORDER
     Dosage: 2 MG QD PO
     Route: 048
     Dates: start: 20040206

REACTIONS (2)
  - FEELING ABNORMAL [None]
  - VERTIGO POSITIONAL [None]
